FAERS Safety Report 7861153-6 (Version None)
Quarter: 2011Q4

REPORT INFORMATION
  Report Type: 
  Country: None (occurrence: None)
  Receive Date: 20111027
  Receipt Date: 20111021
  Transmission Date: 20120403
  Serious: Yes (Other)
  Sender: FDA-Public Use
  Company Number: GB-TEVA-306348ISR

PATIENT
  Age: 16 Year
  Sex: Male
  Weight: 28 kg

DRUGS (4)
  1. SCOPOLAMINE [Suspect]
     Indication: SALIVARY HYPERSECRETION
     Dosage: 1 DF, Q72H
     Route: 062
     Dates: start: 20110516, end: 20110916
  2. SCOPOLAMINE [Suspect]
     Dosage: UNK, UNK
     Route: 062
     Dates: start: 20020101, end: 20020101
  3. METOCLOPRAMIDE [Suspect]
     Indication: VOMITING
     Dosage: 5 TO 10MG, PRN
     Route: 065
     Dates: start: 20110905
  4. SCOPOLAMINE [Suspect]
     Route: 048
     Dates: start: 20110916, end: 20110916

REACTIONS (11)
  - OFF LABEL USE [None]
  - APPLICATION SITE IRRITATION [None]
  - ERUCTATION [None]
  - VOMITING [None]
  - WRONG TECHNIQUE IN DRUG USAGE PROCESS [None]
  - INCORRECT ROUTE OF DRUG ADMINISTRATION [None]
  - PRURITUS [None]
  - DYSKINESIA [None]
  - HYPERSOMNIA [None]
  - FOOD AVERSION [None]
  - RASH ERYTHEMATOUS [None]
